FAERS Safety Report 6694760-7 (Version None)
Quarter: 2010Q2

REPORT INFORMATION
  Report Type: 
  Country: None (occurrence: None)
  Receive Date: 20100423
  Receipt Date: 20100414
  Transmission Date: 20101027
  Serious: Yes (Hospitalization)
  Sender: FDA-Public Use
  Company Number: B0647336A

PATIENT
  Sex: Male

DRUGS (7)
  1. KEMADRIN [Suspect]
     Indication: PARKINSONISM
     Dosage: 5MG THREE TIMES PER DAY
     Route: 048
     Dates: end: 20100215
  2. TRANXENE [Suspect]
     Indication: DRUG USE FOR UNKNOWN INDICATION
     Dosage: 25MG TWICE PER DAY
     Route: 048
     Dates: end: 20100215
  3. HALDOL [Concomitant]
     Indication: DRUG USE FOR UNKNOWN INDICATION
     Route: 048
  4. DIPIPERON [Concomitant]
     Indication: DRUG USE FOR UNKNOWN INDICATION
     Route: 065
  5. DAFLON [Concomitant]
     Indication: DRUG USE FOR UNKNOWN INDICATION
     Route: 065
  6. ZYPREXA [Concomitant]
     Indication: DRUG USE FOR UNKNOWN INDICATION
     Route: 065
  7. ZOLPIDEM [Concomitant]
     Indication: DRUG USE FOR UNKNOWN INDICATION
     Route: 065

REACTIONS (5)
  - ABNORMAL BEHAVIOUR [None]
  - CHOLESTASIS [None]
  - CONDITION AGGRAVATED [None]
  - HEPATOCELLULAR INJURY [None]
  - LIVER FUNCTION TEST ABNORMAL [None]
